FAERS Safety Report 19103327 (Version 2)
Quarter: 2021Q2

REPORT INFORMATION
  Report Type: Spontaneous
  Country: CA (occurrence: CA)
  Receive Date: 20210407
  Receipt Date: 20210429
  Transmission Date: 20210717
  Serious: Yes (Hospitalization, Other)
  Sender: FDA-Public Use
  Company Number: CA-JNJFOC-20210406303

PATIENT
  Sex: Male
  Weight: 3 kg

DRUGS (17)
  1. TYLENOL [Suspect]
     Active Substance: ACETAMINOPHEN
     Indication: PRODUCT USED FOR UNKNOWN INDICATION
     Route: 064
  2. ABILIFY [Suspect]
     Active Substance: ARIPIPRAZOLE
     Dosage: THERAPY DURATION REPORTED AS 622
     Route: 064
  3. BUPRENORPHINE HYDROCHLORIDE. [Suspect]
     Active Substance: BUPRENORPHINE HYDROCHLORIDE
     Indication: DRUG DEPENDENCE
     Route: 064
  4. SUBUTEX [Suspect]
     Active Substance: BUPRENORPHINE HYDROCHLORIDE
     Indication: DRUG DEPENDENCE
     Dosage: THERAPY DURATION REPORTED AS 212
     Route: 064
  5. NICOTINE. [Suspect]
     Active Substance: NICOTINE
     Indication: PRODUCT USED FOR UNKNOWN INDICATION
     Route: 064
  6. ABILIFY [Suspect]
     Active Substance: ARIPIPRAZOLE
     Route: 064
  7. SUBUTEX [Suspect]
     Active Substance: BUPRENORPHINE HYDROCHLORIDE
     Dosage: THERAPY DURATION REPORTED AS ?71
     Route: 064
  8. SUBUTEX [Suspect]
     Active Substance: BUPRENORPHINE HYDROCHLORIDE
     Dosage: THERAPY DURATION REPORTED AS 212
     Route: 064
  9. ABILIFY [Suspect]
     Active Substance: ARIPIPRAZOLE
     Indication: PSYCHOTIC DISORDER
     Route: 064
  10. BUPRENORPHINE HYDROCHLORIDE. [Suspect]
     Active Substance: BUPRENORPHINE HYDROCHLORIDE
     Dosage: THERAPY DURATION REPORTED AS ?71
     Route: 064
  11. BUPRENORPHINE HYDROCHLORIDE. [Suspect]
     Active Substance: BUPRENORPHINE HYDROCHLORIDE
     Dosage: THERAPY DURATION REPORTED AS 212
     Route: 064
  12. SUBUTEX [Suspect]
     Active Substance: BUPRENORPHINE HYDROCHLORIDE
     Dosage: THERAPY DURATION REPORTED AS ?71
     Route: 064
  13. RISPERDAL [Suspect]
     Active Substance: RISPERIDONE
     Indication: PSYCHOTIC DISORDER
     Route: 064
  14. BUPRENORPHINE HYDROCHLORIDE. [Suspect]
     Active Substance: BUPRENORPHINE HYDROCHLORIDE
     Route: 064
  15. SUBOXONE [Suspect]
     Active Substance: BUPRENORPHINE HYDROCHLORIDE\NALOXONE HYDROCHLORIDE
     Indication: DRUG DEPENDENCE
     Route: 064
  16. SUBUTEX [Suspect]
     Active Substance: BUPRENORPHINE HYDROCHLORIDE
     Route: 064
  17. NICOTINE. [Suspect]
     Active Substance: NICOTINE
     Route: 064

REACTIONS (4)
  - Drug withdrawal syndrome neonatal [Recovered/Resolved]
  - Foetal exposure during pregnancy [Recovered/Resolved]
  - Hyperbilirubinaemia neonatal [Recovered/Resolved]
  - Ophthalmia neonatorum [Recovered/Resolved]
